FAERS Safety Report 18113694 (Version 1)
Quarter: 2020Q3

REPORT INFORMATION
  Report Type: Spontaneous
  Country: CN (occurrence: CN)
  Receive Date: 20200805
  Receipt Date: 20200805
  Transmission Date: 20201103
  Serious: Yes (Hospitalization)
  Sender: FDA-Public Use
  Company Number: CN-ELI_LILLY_AND_COMPANY-CN202007013309

PATIENT
  Age: 57 Year
  Sex: Female
  Weight: 56 kg

DRUGS (2)
  1. DULOXETINE HYDROCHLORIDE. [Suspect]
     Active Substance: DULOXETINE HYDROCHLORIDE
     Indication: NEUROSIS
     Dosage: 30 MG, BID
     Route: 048
     Dates: start: 20200410, end: 20200414
  2. WEN FEI [Concomitant]
     Indication: TENSION HEADACHE
     Dosage: 3 MG, DAILY
     Route: 048
     Dates: start: 20200410, end: 20200414

REACTIONS (4)
  - Hyperhidrosis [Recovering/Resolving]
  - Off label use [Unknown]
  - Muscular weakness [Recovering/Resolving]
  - Vomiting [Recovering/Resolving]

NARRATIVE: CASE EVENT DATE: 20200411
